FAERS Safety Report 12412536 (Version 1)
Quarter: 2016Q2

REPORT INFORMATION
  Report Type: Report from Study
  Country: GB (occurrence: GB)
  Receive Date: 20160527
  Receipt Date: 20160527
  Transmission Date: 20160815
  Serious: Yes (Hospitalization)
  Sender: FDA-Public Use
  Company Number: GB-BAXALTA-2016BLT001000

PATIENT
  Age: 35 Year
  Sex: Female
  Weight: 57.3 kg

DRUGS (12)
  1. ONCASPAR [Suspect]
     Active Substance: PEGASPARGASE
     Indication: ACUTE LYMPHOCYTIC LEUKAEMIA
     Dosage: 1640 U, ON DAY 4 AND DAY 18
     Route: 042
     Dates: start: 20151016, end: 20151030
  2. METHOTREXATE [Concomitant]
     Active Substance: METHOTREXATE
     Indication: ACUTE LYMPHOCYTIC LEUKAEMIA
     Dosage: 12.5 MG, DAYS 5,12,19
     Route: 037
     Dates: start: 20151113
  3. MERCAPTOPURINE. [Concomitant]
     Active Substance: MERCAPTOPURINE
     Indication: ACUTE LYMPHOCYTIC LEUKAEMIA
     Dosage: 100 MG, 1X A DAY
     Route: 048
     Dates: start: 20151109
  4. CYCLOPHOSPHAMIDE. [Concomitant]
     Active Substance: CYCLOPHOSPHAMIDE
     Indication: ACUTE LYMPHOCYTIC LEUKAEMIA
     Dosage: 1640 MG, DAY 1 AND 18
     Route: 042
     Dates: start: 20151109, end: 20151123
  5. CYCLIZINE [Concomitant]
     Active Substance: CYCLIZINE
     Indication: NAUSEA
     Dosage: 50 MG, 3X A DAY
     Route: 048
     Dates: start: 20151130
  6. METOCLOPRAMIDE. [Concomitant]
     Active Substance: METOCLOPRAMIDE
     Indication: NAUSEA
     Dosage: 10 MG, 3X A DAY
     Route: 048
     Dates: start: 20151005
  7. CHLORHEXIDINE GLUCONATE. [Concomitant]
     Active Substance: CHLORHEXIDINE GLUCONATE
     Indication: OROPHARYNGEAL PAIN
     Dosage: 10 ML, AS NEEDED
     Route: 048
     Dates: start: 20151126
  8. DEXAMETHASONE. [Concomitant]
     Active Substance: DEXAMETHASONE
     Indication: STEROID THERAPY
     Dosage: 10 MG, 1X A DAY
     Route: 048
     Dates: start: 20151008, end: 20151012
  9. CYTARABINE. [Concomitant]
     Active Substance: CYTARABINE
     Indication: ACUTE LYMPHOCYTIC LEUKAEMIA
     Dosage: 120 MG, DAYS 1,2,3,4,8,9,10,11,15,16,17,18,22
     Route: 042
     Dates: start: 20151109, end: 20151130
  10. AMPHOTERICIN B, LIPOSOME [Concomitant]
     Active Substance: AMPHOTERICIN B
     Indication: ORAL PAIN
     Dosage: 40 MG, 1X A WEEK
     Route: 042
     Dates: start: 20151106
  11. BENZYDAMINE [Concomitant]
     Active Substance: BENZYDAMINE
     Indication: OROPHARYNGEAL PAIN
     Dosage: 10 ML, AS NEEDED
     Route: 048
     Dates: start: 20151126
  12. TINZAPARIN [Concomitant]
     Active Substance: TINZAPARIN
     Indication: ANTICOAGULANT THERAPY
     Dosage: 10000 U, 1X A DAY
     Route: 042
     Dates: start: 20151025

REACTIONS (1)
  - Device related infection [Recovered/Resolved]

NARRATIVE: CASE EVENT DATE: 20151130
